FAERS Safety Report 6882918-3 (Version None)
Quarter: 2010Q3

REPORT INFORMATION
  Report Type: 
  Country: None (occurrence: None)
  Receive Date: 20100729
  Receipt Date: 20100715
  Transmission Date: 20110219
  Serious: Yes (Hospitalization)
  Sender: FDA-Public Use
  Company Number: DE-GENENTECH-304529

PATIENT
  Sex: Female

DRUGS (4)
  1. RANIBIZUMAB [Suspect]
     Indication: MACULAR DEGENERATION
     Dosage: UNK
     Route: 031
     Dates: start: 20080904
  2. AVASTIN [Concomitant]
     Indication: PRODUCT USED FOR UNKNOWN INDICATION
  3. LIQUIFILM [Concomitant]
     Indication: PRODUCT USED FOR UNKNOWN INDICATION
  4. TPN [Concomitant]
     Indication: PRODUCT USED FOR UNKNOWN INDICATION

REACTIONS (2)
  - METAMORPHOPSIA [None]
  - VISUAL ACUITY REDUCED [None]
